FAERS Safety Report 11332551 (Version 1)
Quarter: 2015Q3

REPORT INFORMATION
  Report Type: Spontaneous
  Country: US (occurrence: US)
  Receive Date: 20150803
  Receipt Date: 20150803
  Transmission Date: 20151125
  Serious: No
  Sender: FDA-Public Use
  Company Number: US-ELI_LILLY_AND_COMPANY-US200811000530

PATIENT
  Age: 33 Year
  Sex: Female

DRUGS (2)
  1. ZYPREXA [Suspect]
     Active Substance: OLANZAPINE
     Indication: SLEEP DISORDER
     Dosage: 10 MG, DAILY (1/D)
  2. CELEXA [Concomitant]
     Active Substance: CITALOPRAM HYDROBROMIDE

REACTIONS (6)
  - Visual impairment [Unknown]
  - Memory impairment [Not Recovered/Not Resolved]
  - Dizziness [Unknown]
  - Feeling abnormal [Unknown]
  - Hypoaesthesia [Not Recovered/Not Resolved]
  - Gait disturbance [Unknown]

NARRATIVE: CASE EVENT DATE: 200810
